FAERS Safety Report 25367319 (Version 1)
Quarter: 2025Q2

REPORT INFORMATION
  Report Type: Spontaneous
  Country: CN (occurrence: CN)
  Receive Date: 20250528
  Receipt Date: 20250528
  Transmission Date: 20250717
  Serious: Yes (Hospitalization)
  Sender: NOVAST LABORATORIES LTD
  Company Number: CN-NOVAST LABORATORIES INC.-2025NOV000229

PATIENT

DRUGS (2)
  1. METOPROLOL SUCCINATE [Suspect]
     Active Substance: METOPROLOL SUCCINATE
     Indication: Primary hyperthyroidism
     Route: 048
     Dates: start: 20250505, end: 20250505
  2. METHIMAZOLE [Suspect]
     Active Substance: METHIMAZOLE
     Indication: Primary hyperthyroidism
     Route: 048
     Dates: start: 20250514, end: 20250514

REACTIONS (3)
  - Macule [Recovering/Resolving]
  - Pruritus [Recovering/Resolving]
  - Product use in unapproved indication [Unknown]

NARRATIVE: CASE EVENT DATE: 20250513
